FAERS Safety Report 9600291 (Version 1)
Quarter: 2013Q4

REPORT INFORMATION
  Report Type: Spontaneous
  Country: US (occurrence: US)
  Receive Date: 20131004
  Receipt Date: 20131004
  Transmission Date: 20140711
  Serious: No
  Sender: FDA-Public Use
  Company Number: US-AMGEN-USASP2013033447

PATIENT
  Age: 55 Year
  Sex: Male
  Weight: 73.46 kg

DRUGS (7)
  1. ENBREL [Suspect]
     Indication: PRODUCT USED FOR UNKNOWN INDICATION
     Dosage: 50 MG, QWK
     Route: 058
  2. COQ-10 [Concomitant]
     Dosage: 100 MG, UNK
  3. CRESTOR [Concomitant]
     Dosage: 10 MG, UNK
  4. ASPIRIN [Concomitant]
     Dosage: 81 MG, UNK
  5. METOPROLOL [Concomitant]
     Dosage: 50 MG, UNK
  6. ALEVE [Concomitant]
     Dosage: 220 MG, UNK
  7. IBUPROFEN PM [Concomitant]
     Dosage: 200-38 MG, UNK

REACTIONS (2)
  - Arthralgia [Unknown]
  - Arthritis [Unknown]
